FAERS Safety Report 10943359 (Version 1)
Quarter: 2015Q1

REPORT INFORMATION
  Report Type: Spontaneous
  Country: US (occurrence: US)
  Receive Date: 20150322
  Receipt Date: 20150322
  Transmission Date: 20150721
  Serious: Yes (Death)
  Sender: FDA-Public Use
  Company Number: US-WATSON-2015-05378

PATIENT
  Age: 90 Year
  Sex: Female

DRUGS (1)
  1. DILTIAZEM (UNKNOWN) [Suspect]
     Active Substance: DILTIAZEM
     Indication: COMPLETED SUICIDE
     Dosage: UNKNOWN
     Route: 048

REACTIONS (2)
  - Toxicity to various agents [Fatal]
  - Completed suicide [Fatal]
